FAERS Safety Report 8397817 (Version 2)
Quarter: 2013Q1

REPORT INFORMATION
  Report Type: Report from Study
  Country: DE (occurrence: DE)
  Receive Date: 20120209
  Receipt Date: 20130326
  Transmission Date: 20140127
  Serious: Yes (Other)
  Sender: FDA-Public Use
  Company Number: DE-ROCHE-1032080

PATIENT
  Age: 19 Year
  Sex: 0

DRUGS (2)
  1. RITUXIMAB [Suspect]
     Indication: VASCULITIS
     Dosage: 1000 MG. 2 SEPARATE DOSE
     Route: 065
  2. RITUXIMAB [Suspect]
     Indication: GLOMERULONEPHRITIS

REACTIONS (2)
  - Posterior reversible encephalopathy syndrome [Recovered/Resolved]
  - Grand mal convulsion [Unknown]
